FAERS Safety Report 22281730 (Version 2)
Quarter: 2023Q2

REPORT INFORMATION
  Report Type: Report from Study
  Country: US (occurrence: US)
  Receive Date: 20230504
  Receipt Date: 20230505
  Transmission Date: 20230722
  Serious: Yes (Hospitalization)
  Sender: FDA-Public Use
  Company Number: US-ABBVIE-4745033

PATIENT
  Age: 48 Year
  Sex: Female
  Weight: 97.522 kg

DRUGS (2)
  1. RINVOQ [Suspect]
     Active Substance: UPADACITINIB
     Indication: Rheumatoid arthritis
     Route: 048
     Dates: start: 20211102
  2. PLAQUENIL [Concomitant]
     Active Substance: HYDROXYCHLOROQUINE SULFATE
     Indication: Product used for unknown indication
     Dates: start: 2017

REACTIONS (8)
  - Hypokalaemia [Recovered/Resolved]
  - Nausea [Unknown]
  - Ear discomfort [Recovered/Resolved]
  - Sinusitis [Unknown]
  - Upper respiratory tract infection [Unknown]
  - Dizziness [Unknown]
  - Tinnitus [Unknown]
  - Pain [Unknown]

NARRATIVE: CASE EVENT DATE: 20221201
